FAERS Safety Report 8515886-9 (Version None)
Quarter: 2012Q3

REPORT INFORMATION
  Report Type: 
  Country: None (occurrence: None)
  Receive Date: 20120717
  Receipt Date: 20120716
  Transmission Date: 20120928
  Serious: Yes (Hospitalization, Other)
  Sender: FDA-Public Use
  Company Number: PHHO2011FR08963

PATIENT
  Sex: Female
  Weight: 72 kg

DRUGS (6)
  1. EXEMESTANE [Suspect]
     Dosage: 25 MG, UNK
     Dates: start: 20111011, end: 20120327
  2. EXEMESTANE [Suspect]
     Dosage: 25 MG, UNK
  3. AFINITOR [Suspect]
     Indication: BREAST CANCER METASTATIC
     Dosage: UNK
     Route: 048
     Dates: start: 20091214
  4. AFINITOR [Suspect]
     Dosage: UNK
     Route: 048
     Dates: start: 20111011, end: 20120327
  5. AFINITOR [Suspect]
     Dosage: UNK
     Route: 048
  6. EXEMESTANE [Suspect]
     Indication: BREAST CANCER METASTATIC
     Dosage: 25 MG, UNK
     Dates: start: 20091214

REACTIONS (8)
  - BLADDER DISORDER [None]
  - VOMITING [None]
  - STAPHYLOCOCCAL BACTERAEMIA [None]
  - SKIN NECROSIS [None]
  - KLEBSIELLA SEPSIS [None]
  - ESCHERICHIA INFECTION [None]
  - HERNIAL EVENTRATION [None]
  - ABDOMINAL ABSCESS [None]
